FAERS Safety Report 5047839-X (Version None)
Quarter: 2006Q3

REPORT INFORMATION
  Report Type: 
  Country: None (occurrence: None)
  Receive Date: 20060706
  Receipt Date: 20060706
  Transmission Date: 20061208
  Serious: Yes (Other)
  Sender: FDA-Public Use
  Company Number: None

PATIENT
  Age: 59 Year
  Sex: Female
  Weight: 97.977 kg

DRUGS (2)
  1. ADVAIR DISKUS 250/50 [Suspect]
     Indication: CHEST DISCOMFORT
     Dosage: 250/50     2 TIMES A DAY   OROPHARINGE
     Route: 049
     Dates: start: 20060419, end: 20060420
  2. ADVAIR DISKUS 250/50 [Suspect]
     Indication: COUGH
     Dosage: 250/50     2 TIMES A DAY   OROPHARINGE
     Route: 049
     Dates: start: 20060419, end: 20060420

REACTIONS (13)
  - ANGER [None]
  - ASTHENIA [None]
  - BLISTER [None]
  - BLOOD GLUCOSE INCREASED [None]
  - DEPRESSION [None]
  - ERYTHEMA [None]
  - FEELING HOT [None]
  - HYPERSENSITIVITY [None]
  - HYPERTENSION [None]
  - LIVER FUNCTION TEST ABNORMAL [None]
  - RENAL FUNCTION TEST ABNORMAL [None]
  - SWELLING FACE [None]
  - URTICARIA [None]
